FAERS Safety Report 9730058 (Version 1)
Quarter: 2013Q4

REPORT INFORMATION
  Report Type: Spontaneous
  Country: US (occurrence: US)
  Receive Date: 20131204
  Receipt Date: 20131204
  Transmission Date: 20140711
  Serious: Yes (Hospitalization, Other)
  Sender: FDA-Public Use
  Company Number: US-MPIJNJ-2013MPI001160

PATIENT
  Age: 60 Year
  Sex: Male
  Weight: 82.4 kg

DRUGS (3)
  1. VELCADE [Suspect]
     Indication: PLASMA CELL MYELOMA
     Dosage: 1.5 MG/M2, 1/WEEK
     Route: 058
     Dates: start: 20130607, end: 20130712
  2. DECADRON /00016001/ [Suspect]
     Indication: PLASMA CELL MYELOMA
     Dosage: 40 MG, ON DAYS 2-4, 9-12, AND 17-20 EACH 28 DAYS
     Route: 048
     Dates: start: 20130607, end: 20130712
  3. CYTOXAN [Suspect]
     Indication: PLASMA CELL MYELOMA
     Dosage: 400 MG, 1/WEEK
     Route: 048
     Dates: start: 20130607, end: 20130712

REACTIONS (4)
  - Immune thrombocytopenic purpura [Unknown]
  - Diverticular perforation [Unknown]
  - Peritonitis [Unknown]
  - Pyrexia [Recovered/Resolved]
